FAERS Safety Report 13153869 (Version 6)
Quarter: 2017Q3

REPORT INFORMATION
  Report Type: Report from Study
  Country: DE (occurrence: DE)
  Receive Date: 20170126
  Receipt Date: 20170714
  Transmission Date: 20171127
  Serious: Yes (Hospitalization)
  Sender: FDA-Public Use
  Company Number: DE-BEH-2017077373

PATIENT
  Age: 75 Year
  Sex: Female
  Weight: 67 kg

DRUGS (20)
  1. PRIVIGEN [Suspect]
     Active Substance: HUMAN IMMUNOGLOBULIN G
     Dosage: 20 G, TOT
     Route: 042
     Dates: start: 20170316, end: 20170316
  2. IBRUTINIB [Concomitant]
     Active Substance: IBRUTINIB
     Indication: CHRONIC LYMPHOCYTIC LEUKAEMIA
     Dosage: 140 MG, QD
     Route: 065
     Dates: start: 201605
  3. HUMALOG MIX [Concomitant]
     Active Substance: INSULIN LISPRO
  4. LYRICA [Concomitant]
     Active Substance: PREGABALIN
  5. ACICLOVIR [Concomitant]
     Active Substance: ACYCLOVIR
     Indication: PROPHYLAXIS
     Dosage: UNK
     Route: 065
     Dates: start: 201701
  6. TOREM                              /01036501/ [Concomitant]
     Active Substance: TORSEMIDE
  7. INSPRA [Concomitant]
     Active Substance: EPLERENONE
  8. KREON                              /00014701/ [Concomitant]
     Active Substance: PANCRELIPASE
  9. PRIVIGEN [Suspect]
     Active Substance: HUMAN IMMUNOGLOBULIN G
     Indication: CHRONIC LYMPHOCYTIC LEUKAEMIA
     Dosage: 20 G, TOT
     Route: 042
     Dates: start: 20161220, end: 20161220
  10. PRIVIGEN [Suspect]
     Active Substance: HUMAN IMMUNOGLOBULIN G
     Dosage: 20 G, TOT
     Route: 042
     Dates: start: 20170413, end: 20170413
  11. PRIVIGEN [Suspect]
     Active Substance: HUMAN IMMUNOGLOBULIN G
     Indication: SECONDARY IMMUNODEFICIENCY
     Dosage: 20 G, TOT
     Route: 042
     Dates: start: 20170117, end: 20170117
  12. XARELTO [Concomitant]
     Active Substance: RIVAROXABAN
     Route: 048
  13. RAMIPRIL. [Concomitant]
     Active Substance: RAMIPRIL
  14. PRIVIGEN [Suspect]
     Active Substance: HUMAN IMMUNOGLOBULIN G
     Dosage: 20 G, TOT
     Route: 042
     Dates: start: 20170518, end: 20170518
  15. ANTICOAG [Concomitant]
     Active Substance: UNSPECIFIED INGREDIENT
     Indication: ATRIAL FIBRILLATION
  16. DIGITOXIN [Concomitant]
     Active Substance: DIGITOXIN
  17. PRIVIGEN [Suspect]
     Active Substance: HUMAN IMMUNOGLOBULIN G
     Indication: INFECTION
     Dosage: 20 G, TOT
     Route: 042
     Dates: start: 20170216, end: 20170216
  18. LANTUS [Concomitant]
     Active Substance: INSULIN GLARGINE
  19. METOPROLOL. [Concomitant]
     Active Substance: METOPROLOL
  20. PANTOZOL [Concomitant]
     Active Substance: PANTOPRAZOLE SODIUM

REACTIONS (9)
  - Pyrexia [Recovered/Resolved]
  - Confusional state [Unknown]
  - Psychomotor retardation [Unknown]
  - Dementia [Unknown]
  - Hepatic cyst [Unknown]
  - Hepatic congestion [Not Recovered/Not Resolved]
  - Bacterial infection [Recovered/Resolved]
  - Memory impairment [Unknown]
  - Abdominal mass [Unknown]

NARRATIVE: CASE EVENT DATE: 20170103
